FAERS Safety Report 7422812-2 (Version None)
Quarter: 2011Q2

REPORT INFORMATION
  Report Type: 
  Country: None (occurrence: None)
  Receive Date: 20110419
  Receipt Date: 20100116
  Transmission Date: 20111010
  Serious: Yes (Death, Hospitalization, Other)
  Sender: FDA-Public Use
  Company Number: US-BAYER-201011371NA

PATIENT
  Age: 48 Year
  Sex: Male
  Weight: 102.4 kg

DRUGS (11)
  1. LOPRESSOR [Concomitant]
     Dosage: 25 MG, UNK
     Dates: start: 20080220
  2. ENALAPRIL [Concomitant]
     Dosage: UNK
     Dates: start: 20080220
  3. NITROGLYCERIN [Concomitant]
     Dosage: 1 INCH
     Dates: start: 20080220
  4. PROTAMINE SULFATE [Concomitant]
     Dosage: 50 CC
  5. AMIODARONE [Concomitant]
     Indication: VENTRICULAR ARRHYTHMIA
     Dosage: UNK
     Dates: start: 20080225
  6. LOVENOX [Concomitant]
     Dosage: UNK
     Dates: start: 20080220
  7. ASPIRIN [Concomitant]
     Dosage: UNK
     Dates: start: 20080221
  8. PAPAVERINE [Concomitant]
     Dosage: 60 MG IN 250 LR 30 MG IN 30 CC SALINE
     Dates: start: 20080225, end: 20080225
  9. INTEGRILIN [Concomitant]
     Dosage: 21CC/HR
     Dates: start: 20080221
  10. TRASYLOL [Suspect]
     Indication: CORONARY ARTERY BYPASS
     Dates: start: 20080225
  11. HEPARIN [Concomitant]
     Dosage: UNK
     Dates: start: 20080225

REACTIONS (15)
  - RENAL FAILURE [None]
  - CEREBROVASCULAR ACCIDENT [None]
  - ORGAN FAILURE [None]
  - MULTI-ORGAN FAILURE [None]
  - DEPRESSION [None]
  - DEATH [None]
  - PAIN [None]
  - INJURY [None]
  - RENAL IMPAIRMENT [None]
  - ANHEDONIA [None]
  - FEAR [None]
  - RENAL INJURY [None]
  - CARDIAC DISORDER [None]
  - ANXIETY [None]
  - UNEVALUABLE EVENT [None]
